FAERS Safety Report 7581244-7 (Version None)
Quarter: 2011Q2

REPORT INFORMATION
  Report Type: 
  Country: None (occurrence: None)
  Receive Date: 20110629
  Receipt Date: 20110620
  Transmission Date: 20111010
  Serious: Yes (Hospitalization, Other)
  Sender: FDA-Public Use
  Company Number: PHHY2011PL55441

PATIENT
  Age: 23 Year
  Sex: Female

DRUGS (3)
  1. POTASSIUM CHLORIDE [Suspect]
     Dosage: 2346 MG, UNK
  2. VERPAMIL HCL [Suspect]
     Dosage: 240 MG, UNK
  3. METHYLDOPA [Suspect]
     Dosage: 1500 MG, UNK

REACTIONS (8)
  - WEIGHT DECREASED [None]
  - BLOOD CORTISOL DECREASED [None]
  - OVERDOSE [None]
  - ADRENAL INSUFFICIENCY [None]
  - SKIN DISCOLOURATION [None]
  - PREMATURE LABOUR [None]
  - ADRENAL ADENOMA [None]
  - DRUG EXPOSURE DURING PREGNANCY [None]
